FAERS Safety Report 6404354-6 (Version None)
Quarter: 2009Q4

REPORT INFORMATION
  Report Type: 
  Country: None (occurrence: None)
  Receive Date: 20091013
  Receipt Date: 20091001
  Transmission Date: 20100525
  Serious: Yes (Hospitalization)
  Sender: FDA-Public Use
  Company Number: 2009-03812

PATIENT
  Age: 72 Year
  Sex: Female

DRUGS (11)
  1. VELCADE [Suspect]
     Indication: MULTIPLE MYELOMA
     Dosage: 2.04MG, INTRAVENOUS
     Route: 042
     Dates: start: 20090817, end: 20090827
  2. PREDNISOLONE TAB [Suspect]
     Indication: MULTIPLE MYELOMA
     Dosage: 90 MG, ORAL
     Route: 048
     Dates: start: 20090817, end: 20090820
  3. MELPHALAN HYDROCHLORIDE [Suspect]
     Indication: MULTIPLE MYELOMA
     Dosage: 12MG, ORAL
     Route: 048
     Dates: start: 20090817, end: 20090820
  4. OMEPRAZOLE [Concomitant]
  5. CRESTOR [Concomitant]
  6. EPADEL (ETHYL ICOSAPENTATE) [Concomitant]
  7. LASIX [Concomitant]
  8. ALESION (EPINASTINE HYDROCHLORIDE) [Concomitant]
  9. ALDACTONE [Concomitant]
  10. LAC B (LACTOBACILLUS BIFIDUS, LYOPHILIZED) [Concomitant]
  11. ZOLPIDEM TARTRATE [Concomitant]

REACTIONS (8)
  - ABDOMINAL PAIN [None]
  - BLOOD IMMUNOGLOBULIN G DECREASED [None]
  - CONSTIPATION [None]
  - DIARRHOEA [None]
  - HERPES ZOSTER DISSEMINATED [None]
  - HYPOAESTHESIA [None]
  - OEDEMA PERIPHERAL [None]
  - WEIGHT INCREASED [None]
